FAERS Safety Report 13459677 (Version 1)
Quarter: 2017Q2

REPORT INFORMATION
  Report Type: Spontaneous
  Country: SE (occurrence: SE)
  Receive Date: 20170419
  Receipt Date: 20170419
  Transmission Date: 20170830
  Serious: Yes (Hospitalization)
  Sender: FDA-Public Use
  Company Number: SE-IPCA LABORATORIES LIMITED-IPC201704-000526

PATIENT
  Age: 68 Year
  Sex: Female

DRUGS (4)
  1. METOPROLOL TARTRATE. [Suspect]
     Active Substance: METOPROLOL TARTRATE
  2. SPIRONOLACTONE. [Suspect]
     Active Substance: SPIRONOLACTONE
  3. FURIX [Suspect]
     Active Substance: FUROSEMIDE
  4. IMDUR [Suspect]
     Active Substance: ISOSORBIDE MONONITRATE

REACTIONS (2)
  - Hypotension [Recovered/Resolved]
  - Blood creatinine increased [Recovered/Resolved]
